FAERS Safety Report 25567450 (Version 1)
Quarter: 2025Q3

REPORT INFORMATION
  Report Type: Spontaneous
  Country: US (occurrence: US)
  Receive Date: 20250716
  Receipt Date: 20250716
  Transmission Date: 20251021
  Serious: Yes (Other)
  Sender: RECKITT BENCKISER
  Company Number: US-INDIVIOR US-INDV-166460-2025

PATIENT
  Age: 72 Year
  Sex: Male

DRUGS (6)
  1. BUPRENORPHINE\NALOXONE [Suspect]
     Active Substance: BUPRENORPHINE\NALOXONE
     Indication: Drug use disorder
     Dosage: 16 MILLIGRAM, QD (ON HOSPITAL DAY 04)
     Route: 060
  2. BUPRENORPHINE\NALOXONE [Suspect]
     Active Substance: BUPRENORPHINE\NALOXONE
     Route: 060
  3. BUPRENORPHINE\NALOXONE [Suspect]
     Active Substance: BUPRENORPHINE\NALOXONE
     Route: 060
  4. BUPRENORPHINE\NALOXONE [Suspect]
     Active Substance: BUPRENORPHINE\NALOXONE
     Dosage: 8 MILLIGRAM, BID (ON HOSPITAL DAY 08)
     Route: 060
  5. FENTANYL [Suspect]
     Active Substance: FENTANYL
     Indication: Fracture pain
     Route: 065
  6. KETAMINE [Suspect]
     Active Substance: KETAMINE
     Indication: Drug withdrawal syndrome
     Route: 042

REACTIONS (5)
  - Delirium [Recovered/Resolved]
  - Product use issue [Recovered/Resolved]
  - Drug dependence [Recovered/Resolved]
  - Inappropriate schedule of product administration [Not Recovered/Not Resolved]
  - Drug withdrawal syndrome [Recovered/Resolved]
